FAERS Safety Report 4461713-9 (Version None)
Quarter: 2004Q3

REPORT INFORMATION
  Report Type: 
  Country: None (occurrence: None)
  Receive Date: 20040929
  Receipt Date: 20040917
  Transmission Date: 20050211
  Serious: Yes (Hospitalization, Other)
  Sender: FDA-Public Use
  Company Number: PHEH2004US10047

PATIENT
  Sex: Female

DRUGS (1)
  1. ZELNORM [Suspect]
     Indication: GASTROINTESTINAL DISORDER
     Dosage: UNK, ONCE/SINGLE
     Dates: start: 20040907, end: 20040907

REACTIONS (4)
  - AURA [None]
  - CONVULSION [None]
  - DIARRHOEA [None]
  - FEELING ABNORMAL [None]
